FAERS Safety Report 26150999 (Version 1)
Quarter: 2025Q4

REPORT INFORMATION
  Report Type: Spontaneous
  Country: US (occurrence: None)
  Receive Date: 20251212
  Receipt Date: 20251212
  Transmission Date: 20260118
  Serious: Yes (Other)
  Sender: ORGANON
  Company Number: US-ORGANON-O2512USA000903

PATIENT
  Sex: Female

DRUGS (1)
  1. NEXPLANON [Suspect]
     Active Substance: ETONOGESTREL
     Dosage: 1 IMPLANT IN ARM

REACTIONS (3)
  - Heavy menstrual bleeding [Recovered/Resolved]
  - Intermenstrual bleeding [Unknown]
  - Abdominal pain [Not Recovered/Not Resolved]
